FAERS Safety Report 12880641 (Version 2)
Quarter: 2017Q1

REPORT INFORMATION
  Report Type: Spontaneous
  Country: JP (occurrence: JP)
  Receive Date: 20161025
  Receipt Date: 20170216
  Transmission Date: 20170428
  Serious: Yes (Other)
  Sender: FDA-Public Use
  Company Number: JP-GLAXOSMITHKLINE-JP2016JPN152526

PATIENT
  Sex: Female

DRUGS (1)
  1. VOLTAREN EX TAPE [Suspect]
     Active Substance: DICLOFENAC SODIUM
     Indication: OSTEOARTHRITIS
     Dosage: UNK
     Route: 050

REACTIONS (4)
  - Lumbar vertebral fracture [Unknown]
  - Application site discolouration [Recovering/Resolving]
  - Sleep disorder [Unknown]
  - Movement disorder [Unknown]
